FAERS Safety Report 9991920 (Version 4)
Quarter: 2014Q3

REPORT INFORMATION
  Report Type: Report from Study
  Country: GB (occurrence: GB)
  Receive Date: 20140310
  Receipt Date: 20140915
  Transmission Date: 20150326
  Serious: No
  Sender: FDA-Public Use
  Company Number: PHHY2014GB014320

PATIENT
  Age: 43 Year
  Sex: Female
  Weight: 92 kg

DRUGS (10)
  1. ILARIS [Suspect]
     Active Substance: CANAKINUMAB
     Indication: CRYOPYRIN ASSOCIATED PERIODIC SYNDROME
     Dosage: 150 MG, UNK
     Route: 058
     Dates: start: 201308, end: 20131219
  2. PARACETAMOL [Concomitant]
     Active Substance: ACETAMINOPHEN
     Indication: ARTHRALGIA
     Route: 048
     Dates: start: 2002
  3. SODIUM PHOSPHATE [Concomitant]
     Active Substance: SODIUM PHOSPHATE
     Indication: ARTHRALGIA
     Dosage: 30 MG, UNK
     Route: 048
  4. FUROSEMIDE. [Concomitant]
     Active Substance: FUROSEMIDE
     Indication: GLOMERULONEPHRITIS
     Dosage: 80 MG, UNK
     Route: 048
     Dates: start: 201306
  5. ANAKINRA [Concomitant]
     Active Substance: ANAKINRA
     Indication: CRYOPYRIN ASSOCIATED PERIODIC SYNDROME
     Dosage: 100 MG, UNK
     Route: 058
     Dates: start: 20140130
  6. CALCICHEW D3 [Concomitant]
     Active Substance: CALCIUM\CHOLECALCIFEROL
     Dosage: 2 DF, UNK
     Route: 048
     Dates: start: 201306
  7. PROGRAF [Concomitant]
     Active Substance: TACROLIMUS\TACROLIMUS ANHYDROUS
     Indication: IMMUNOSUPPRESSION
     Dosage: 1 MG, UNK
     Route: 048
     Dates: start: 201310
  8. DEPO-PROVERA [Concomitant]
     Active Substance: MEDROXYPROGESTERONE ACETATE
     Dates: start: 1996
  9. CODEINE PHOSPHATE [Concomitant]
     Active Substance: CODEINE PHOSPHATE
     Indication: ARTHRALGIA
     Dosage: 30 MG, UNK
     Route: 048
  10. HYDROXYCHLOROQUINE [Concomitant]
     Active Substance: HYDROXYCHLOROQUINE
     Indication: ARTHRALGIA
     Dosage: 200 MG, BID
     Route: 048
     Dates: start: 201206

REACTIONS (5)
  - Perivascular dermatitis [Recovering/Resolving]
  - Pallor [Recovering/Resolving]
  - Oedema peripheral [Recovering/Resolving]
  - Rash erythematous [Recovering/Resolving]
  - Cellulitis [Recovered/Resolved]

NARRATIVE: CASE EVENT DATE: 20131201
